FAERS Safety Report 5573723-9 (Version None)
Quarter: 2007Q4

REPORT INFORMATION
  Report Type: 
  Country: None (occurrence: None)
  Receive Date: 20071226
  Receipt Date: 20071220
  Transmission Date: 20080405
  Serious: Yes (Other)
  Sender: FDA-Public Use
  Company Number: GB-MERCK-0712GBR00082

PATIENT
  Age: 30 Year
  Sex: Male
  Weight: 66 kg

DRUGS (1)
  1. PROPECIA [Suspect]
     Indication: MALE PATTERN BALDNESS
     Route: 048
     Dates: start: 20070417, end: 20070619

REACTIONS (1)
  - HAEMATOSPERMIA [None]
